FAERS Safety Report 6497184-0 (Version None)
Quarter: 2009Q4

REPORT INFORMATION
  Report Type: 
  Country: None (occurrence: None)
  Receive Date: 20091215
  Receipt Date: 20090608
  Transmission Date: 20100525
  Serious: No
  Sender: FDA-Public Use
  Company Number: A0786123A

PATIENT
  Age: 59 Year
  Sex: Male
  Weight: 80.9 kg

DRUGS (2)
  1. AVODART [Suspect]
     Indication: PROSTATE CANCER
     Dosage: .5MG PER DAY
     Route: 048
     Dates: start: 20090410, end: 20090531
  2. NO CONCURRENT MEDICATION [Concomitant]

REACTIONS (4)
  - ERECTILE DYSFUNCTION [None]
  - SEMEN ANALYSIS ABNORMAL [None]
  - TESTICULAR PAIN [None]
  - TESTICULAR SWELLING [None]
